FAERS Safety Report 5446279-9 (Version None)
Quarter: 2007Q3

REPORT INFORMATION
  Report Type: 
  Country: None (occurrence: None)
  Receive Date: 20070907
  Receipt Date: 20070827
  Transmission Date: 20080115
  Serious: Yes (Hospitalization, Other)
  Sender: FDA-Public Use
  Company Number: US-ELI_LILLY_AND_COMPANY-US200708002630

PATIENT
  Age: 83 Year
  Sex: Female
  Weight: 51.7 kg

DRUGS (8)
  1. FORTEO [Suspect]
     Indication: OSTEOPOROSIS
     Dosage: 20 UG, DAILY (1/D)
     Dates: start: 20070501
  2. NORVASC [Concomitant]
  3. HYDROCHLOROTHIAZIDE [Concomitant]
  4. TOPROL-XL [Concomitant]
  5. LYRICA [Concomitant]
  6. NAPROXEN [Concomitant]
  7. LASIX [Concomitant]
  8. PRILOSEC [Concomitant]

REACTIONS (3)
  - FALL [None]
  - HYPOTENSION [None]
  - PELVIC FRACTURE [None]
